FAERS Safety Report 6153271-8 (Version None)
Quarter: 2009Q2

REPORT INFORMATION
  Report Type: 
  Country: None (occurrence: None)
  Receive Date: 20090409
  Receipt Date: 20090327
  Transmission Date: 20091009
  Serious: Yes (Hospitalization)
  Sender: FDA-Public Use
  Company Number: GXKR2009IN03991

PATIENT
  Age: 80 Year
  Sex: Male

DRUGS (6)
  1. MORPHINE [Suspect]
     Indication: PAIN
     Dosage: 5 MG, Q4H
  2. AMITRIPTYLINE HCL [Suspect]
     Dosage: 25 MG, QD
  3. RANITIDINE [Suspect]
     Indication: PAIN
     Dosage: 150 MG, Q12H
  4. IBUPROFEN [Concomitant]
  5. ACETAMINOPHEN [Concomitant]
  6. TRAMADOL HCL [Concomitant]

REACTIONS (11)
  - BLOOD ALBUMIN DECREASED [None]
  - BREAKTHROUGH PAIN [None]
  - CONSCIOUSNESS FLUCTUATING [None]
  - DRUG INTERACTION [None]
  - INADEQUATE ANALGESIA [None]
  - LOSS OF CONSCIOUSNESS [None]
  - OVERDOSE [None]
  - RESPIRATORY RATE DECREASED [None]
  - SEDATION [None]
  - SOMNOLENCE [None]
  - UNRESPONSIVE TO STIMULI [None]
